FAERS Safety Report 15420760 (Version 1)
Quarter: 2018Q3

REPORT INFORMATION
  Report Type: Spontaneous
  Country: US (occurrence: US)
  Receive Date: 20180924
  Receipt Date: 20180924
  Transmission Date: 20181010
  Serious: No
  Sender: FDA-Public Use
  Company Number: US-ALLERGAN-1805750US

PATIENT
  Age: 36 Year
  Sex: Female
  Weight: 68.27 kg

DRUGS (2)
  1. LINZESS [Suspect]
     Active Substance: LINACLOTIDE
     Indication: BOWEL MOVEMENT IRREGULARITY
     Dosage: 145 ?G, PRN
     Route: 048
     Dates: start: 201712
  2. TOPAMAX [Concomitant]
     Active Substance: TOPIRAMATE
     Indication: MIGRAINE
     Dosage: 1 DF, QD
     Dates: start: 2011

REACTIONS (4)
  - Abdominal pain upper [Not Recovered/Not Resolved]
  - Off label use [Unknown]
  - Nausea [Not Recovered/Not Resolved]
  - Drug ineffective [Unknown]
